FAERS Safety Report 21800831 (Version 1)
Quarter: 2022Q4

REPORT INFORMATION
  Report Type: Spontaneous
  Country: US (occurrence: None)
  Receive Date: 20221229
  Receipt Date: 20221229
  Transmission Date: 20230112
  Serious: Yes (Other)
  Sender: FDA-Public Use
  Company Number: None

PATIENT
  Age: 33 Year
  Sex: Female
  Weight: 123.75 kg

DRUGS (6)
  1. QELBREE [Suspect]
     Active Substance: VILOXAZINE HYDROCHLORIDE
     Indication: Attention deficit hyperactivity disorder
     Dosage: OTHER QUANTITY : 2 CAPSULE(S);?
     Route: 048
     Dates: start: 20221217, end: 20221221
  2. SINGULAIR [Concomitant]
     Active Substance: MONTELUKAST SODIUM
  3. WELLBUTRIN [Concomitant]
     Active Substance: BUPROPION HYDROCHLORIDE
  4. I-methyolfolate [Concomitant]
  5. CLONIDINE [Concomitant]
     Active Substance: CLONIDINE
  6. ZYRTEC [Concomitant]
     Active Substance: CETIRIZINE HYDROCHLORIDE

REACTIONS (22)
  - Nausea [None]
  - Dizziness [None]
  - Feeling hot [None]
  - Sensory disturbance [None]
  - Tachyphrenia [None]
  - Somnolence [None]
  - Hypersensitivity [None]
  - Pharyngeal swelling [None]
  - Withdrawal syndrome [None]
  - Migraine [None]
  - Electric shock sensation [None]
  - Seizure [None]
  - Hallucination [None]
  - Insomnia [None]
  - Diarrhoea [None]
  - Influenza like illness [None]
  - Feeling jittery [None]
  - Tremor [None]
  - Heart rate increased [None]
  - Pressure of speech [None]
  - Dissociation [None]
  - Irritability [None]

NARRATIVE: CASE EVENT DATE: 20221223
